FAERS Safety Report 5364735-9 (Version None)
Quarter: 2007Q2

REPORT INFORMATION
  Report Type: 
  Country: None (occurrence: None)
  Receive Date: 20070530
  Receipt Date: 20070122
  Transmission Date: 20071010
  Serious: No
  Sender: FDA-Public Use
  Company Number: 2007PV028833

PATIENT
  Age: 49 Year
  Sex: Female
  Weight: 63.5036 kg

DRUGS (7)
  1. BYETTA [Suspect]
     Indication: GLUCOSE TOLERANCE IMPAIRED
     Dosage: 5 MCG;QPM;SC, 5 MCG;BID;SC, 5 MCG;QPM;SC
     Route: 058
     Dates: start: 20060921, end: 20061201
  2. BYETTA [Suspect]
     Indication: GLUCOSE TOLERANCE IMPAIRED
     Dosage: 5 MCG;QPM;SC, 5 MCG;BID;SC, 5 MCG;QPM;SC
     Route: 058
     Dates: start: 20061201, end: 20061201
  3. BYETTA [Suspect]
     Indication: GLUCOSE TOLERANCE IMPAIRED
     Dosage: 5 MCG;QPM;SC, 5 MCG;BID;SC, 5 MCG;QPM;SC
     Route: 058
     Dates: start: 20061201
  4. GLUCOPHAGE [Concomitant]
  5. AVANDARYL [Concomitant]
  6. AMARYL [Concomitant]
  7. LEVEMIR [Concomitant]

REACTIONS (1)
  - BLOOD GLUCOSE INCREASED [None]
